FAERS Safety Report 20767723 (Version 1)
Quarter: 2022Q2

REPORT INFORMATION
  Report Type: Spontaneous
  Country: US (occurrence: US)
  Receive Date: 20220429
  Receipt Date: 20220429
  Transmission Date: 20220721
  Serious: Yes (Life-Threatening, Hospitalization, Other)
  Sender: FDA-Public Use
  Company Number: US-MLMSERVICE-20220414-3500086-1

PATIENT
  Sex: Male

DRUGS (1)
  1. TACROLIMUS [Suspect]
     Active Substance: TACROLIMUS
     Indication: Product used for unknown indication

REACTIONS (4)
  - Complications of transplanted heart [Recovered/Resolved]
  - Cardiac failure acute [Recovered/Resolved]
  - Chronic kidney disease [Recovering/Resolving]
  - Coronary artery disease [Recovered/Resolved]
